FAERS Safety Report 25779540 (Version 1)
Quarter: 2025Q3

REPORT INFORMATION
  Report Type: Spontaneous
  Country: US (occurrence: US)
  Receive Date: 20250909
  Receipt Date: 20250909
  Transmission Date: 20251020
  Serious: No
  Sender: INCYTE
  Company Number: US-EVENT-004036

PATIENT
  Age: 82 Year

DRUGS (1)
  1. OPZELURA [Suspect]
     Active Substance: RUXOLITINIB PHOSPHATE
     Indication: Vitiligo
     Dosage: 1.5 PERCENT, BID (APPLY A THIN LAYER TO VITILIGO PATCHES ON ARMS TWICE DAILY AS DIRECTED)

REACTIONS (2)
  - Conjunctivitis [Unknown]
  - Eye disorder [Unknown]
